FAERS Safety Report 4782410-6 (Version None)
Quarter: 2005Q3

REPORT INFORMATION
  Report Type: 
  Country: None (occurrence: None)
  Receive Date: 20050929
  Receipt Date: 20050919
  Transmission Date: 20060218
  Serious: Yes (Death)
  Sender: FDA-Public Use
  Company Number: US-JNJFOC-20050803652

PATIENT
  Sex: Female

DRUGS (7)
  1. REMICADE [Suspect]
  2. REMICADE [Suspect]
  3. REMICADE [Suspect]
     Indication: CROHN'S DISEASE
  4. PREDNISONE [Concomitant]
  5. IMURAN [Concomitant]
  6. LOVENOX [Concomitant]
  7. 5-ASA [Concomitant]

REACTIONS (2)
  - FOETAL GROWTH RETARDATION [None]
  - UMBILICAL CORD AROUND NECK [None]
